FAERS Safety Report 6530516-3 (Version None)
Quarter: 2010Q1

REPORT INFORMATION
  Report Type: 
  Country: None (occurrence: None)
  Receive Date: 20100107
  Receipt Date: 20091230
  Transmission Date: 20100710
  Serious: Yes (Other)
  Sender: FDA-Public Use
  Company Number: GB-ELI_LILLY_AND_COMPANY-GB200912006184

PATIENT
  Age: 68 Year
  Sex: Female
  Weight: 122 kg

DRUGS (7)
  1. BYETTA [Suspect]
     Indication: DIABETES MELLITUS
     Dosage: 10 UG, 2/D
     Route: 058
     Dates: start: 20090201
  2. RAMIPRIL [Concomitant]
     Indication: HYPERTENSION
     Dosage: 1.25 MG, DAILY (1/D)
     Route: 048
     Dates: start: 20090820, end: 20090822
  3. ALLOPURINOL [Concomitant]
     Indication: GOUT
     Dosage: 300 MG, DAILY (1/D)
     Route: 048
     Dates: start: 20090722
  4. COLCHICINE [Concomitant]
     Indication: GOUT
     Dosage: 500 UG, 2/D
     Route: 048
     Dates: start: 20090723, end: 20090820
  5. FRUSEMIDE [Concomitant]
     Indication: RETROPERITONEAL FIBROSIS
     Dosage: 80 MG, DAILY (1/D)
     Route: 048
     Dates: start: 20040101
  6. PARACETAMOL [Concomitant]
     Dosage: UNK, 2/D
     Route: 048
  7. PERINDOPRIL ERBUMINE [Concomitant]
     Dosage: 2 MG, UNKNOWN
     Route: 065
     Dates: start: 20090729, end: 20090729

REACTIONS (4)
  - DERMATITIS ALLERGIC [None]
  - PRURITUS [None]
  - SKIN SWELLING [None]
  - URTICARIA [None]
